FAERS Safety Report 24576287 (Version 1)
Quarter: 2024Q4

REPORT INFORMATION
  Report Type: Spontaneous
  Country: US (occurrence: US)
  Receive Date: 20241104
  Receipt Date: 20241104
  Transmission Date: 20250115
  Serious: No
  Sender: PFIZER
  Company Number: US-PFIZER INC-202400288240

PATIENT
  Sex: Female

DRUGS (2)
  1. ZAVZPRET [Suspect]
     Active Substance: ZAVEGEPANT HYDROCHLORIDE
     Indication: Migraine
     Dosage: 10 MG READY-TO-USE, SINGLE DOSE
     Dates: start: 20241025, end: 20241026
  2. UBRELVY [Concomitant]
     Active Substance: UBROGEPANT
     Dosage: 50 MG
     Dates: start: 20241024, end: 20241025

REACTIONS (2)
  - Drug ineffective [Unknown]
  - Dysgeusia [Unknown]

NARRATIVE: CASE EVENT DATE: 20241025
